FAERS Safety Report 4281908-7 (Version None)
Quarter: 2004Q1

REPORT INFORMATION
  Report Type: 
  Country: None (occurrence: None)
  Receive Date: 20040128
  Receipt Date: 20040112
  Transmission Date: 20041129
  Serious: Yes (Death, Hospitalization)
  Sender: FDA-Public Use
  Company Number: ATO-04-0035

PATIENT
  Age: 76 Year
  Sex: Male
  Weight: 74 kg

DRUGS (2)
  1. TRISENOX [Suspect]
     Indication: MULTIPLE MYELOMA
     Dosage: SEE IMAGE
     Route: 042
     Dates: start: 20030916, end: 20030920
  2. TRISENOX [Suspect]
     Indication: MULTIPLE MYELOMA
     Dosage: SEE IMAGE
     Route: 042
     Dates: start: 20030923, end: 20030923

REACTIONS (5)
  - BRONCHOPNEUMONIA [None]
  - EYELID OEDEMA [None]
  - IIIRD NERVE PARALYSIS [None]
  - NEUTROPENIA [None]
  - SINUSITIS [None]
